FAERS Safety Report 18112239 (Version 3)
Quarter: 2020Q4

REPORT INFORMATION
  Report Type: Spontaneous
  Country: US (occurrence: US)
  Receive Date: 20200805
  Receipt Date: 20201027
  Transmission Date: 20210113
  Serious: Yes (Other)
  Sender: FDA-Public Use
  Company Number: US-CIPLA LTD.-2020US05214

PATIENT

DRUGS (4)
  1. AZACITIDINE. [Suspect]
     Active Substance: AZACITIDINE
     Indication: ACUTE MYELOID LEUKAEMIA
     Dosage: 50% DOSE REDUCTION 37.5 MG/M2 FOR FIVE DAYS
     Route: 042
  2. VENETOCLAX. [Suspect]
     Active Substance: VENETOCLAX
     Dosage: DOSE ESCALATION TO 200 MILLIGRAM ON DAY 2
     Route: 048
  3. VENETOCLAX. [Suspect]
     Active Substance: VENETOCLAX
     Dosage: 400 MILLIGRAM ON DAY 3, CONTINUED 28 DAY TREATMENT CYCLE
     Route: 048
  4. VENETOCLAX. [Suspect]
     Active Substance: VENETOCLAX
     Indication: ACUTE MYELOID LEUKAEMIA
     Dosage: 100 MILLIGRAM ON DAY 1
     Route: 048

REACTIONS (4)
  - Product use in unapproved indication [Unknown]
  - Cytopenia [Recovered/Resolved]
  - Off label use [Unknown]
  - Pulmonary embolism [Unknown]
